FAERS Safety Report 10975952 (Version 6)
Quarter: 2018Q1

REPORT INFORMATION
  Report Type: Report from Study
  Country: US (occurrence: US)
  Receive Date: 20150401
  Receipt Date: 20180124
  Transmission Date: 20180508
  Serious: Yes (Other)
  Sender: FDA-Public Use
  Company Number: US-EISAI MEDICAL RESEARCH-EC-2015-005513

PATIENT
  Age: 69 Year
  Sex: Male
  Weight: 126.2 kg

DRUGS (35)
  1. LORCASERIN [Suspect]
     Active Substance: LORCASERIN HYDROCHLORIDE
     Route: 048
     Dates: start: 20150914, end: 20160615
  2. AMOXICILLIN. [Concomitant]
     Active Substance: AMOXICILLIN
     Route: 048
     Dates: start: 1999
  3. HYDRALAZINE [Concomitant]
     Active Substance: HYDRALAZINE HYDROCHLORIDE
     Route: 048
     Dates: start: 20141122, end: 20150301
  4. COREG [Concomitant]
     Active Substance: CARVEDILOL
     Route: 048
     Dates: start: 20150210
  5. KIRKLAND ALLERGY (DIPHENHYDRAMINE) [Concomitant]
     Route: 048
     Dates: start: 20150224
  6. VITAMIN B12 [Concomitant]
     Active Substance: CYANOCOBALAMIN
     Route: 048
     Dates: start: 2009
  7. MELATONIN [Concomitant]
     Active Substance: MELATONIN
     Route: 048
     Dates: start: 20141223
  8. CLOBETASOL EMOLLIENT CREAM 0.05% [Concomitant]
     Route: 061
     Dates: start: 20141228
  9. COQ10 [Concomitant]
     Active Substance: UBIDECARENONE
     Route: 048
     Dates: start: 20150224
  10. LANTUS [Concomitant]
     Active Substance: INSULIN GLARGINE
     Route: 058
     Dates: start: 20141122
  11. VITAMIN B COMPLEX [Concomitant]
     Active Substance: CYANOCOBALAMIN\DEXPANTHENOL\NIACINAMIDE\PYRIDOXINE HYDROCHLORIDE\RIBOFLAVIN 5^-PHOSPHATE SODIUM\THIAMINE HYDROCHLORIDE\VITAMIN B COMPLEX
     Route: 048
     Dates: start: 20150224
  12. LAMISIL AT ANTIFUNGAL [Concomitant]
     Active Substance: TERBINAFINE
  13. LEVOTHYROXINE. [Concomitant]
     Active Substance: LEVOTHYROXINE
     Route: 048
     Dates: start: 1974
  14. HUMALOG [Concomitant]
     Active Substance: INSULIN LISPRO
     Route: 058
     Dates: start: 20141122, end: 20150317
  15. ASPIRIN. [Concomitant]
     Active Substance: ASPIRIN
     Route: 048
     Dates: start: 201502
  16. AMLODIPINE [Concomitant]
     Active Substance: AMLODIPINE BESYLATE
     Route: 048
     Dates: start: 20150302
  17. PREVIDENT [Concomitant]
     Active Substance: SODIUM FLUORIDE
     Route: 048
     Dates: start: 2004
  18. COQ10 [Concomitant]
     Active Substance: UBIDECARENONE
     Route: 048
     Dates: start: 2009, end: 20150223
  19. METRONIDAZOLE 0.75% [Concomitant]
     Route: 061
     Dates: start: 201403
  20. PREVAGEN (APOAEQUORIN) [Concomitant]
     Active Substance: DIETARY SUPPLEMENT
     Route: 048
     Dates: start: 20150301
  21. TRIAMCINOLONE ACETONIDE 1% [Concomitant]
  22. STRATTERA [Concomitant]
     Active Substance: ATOMOXETINE HYDROCHLORIDE
     Route: 048
     Dates: start: 1999
  23. HYDRALAZINE [Concomitant]
     Active Substance: HYDRALAZINE HYDROCHLORIDE
     Route: 048
     Dates: start: 20150302
  24. CARVEDILOL. [Concomitant]
     Active Substance: CARVEDILOL
     Route: 048
     Dates: start: 20141122, end: 20150209
  25. OSTEOBIFLEX WITH LOXIN [Concomitant]
     Route: 048
     Dates: start: 20150201
  26. FENOFIBRATE. [Concomitant]
     Active Substance: FENOFIBRATE
     Route: 048
     Dates: start: 1999
  27. LORCASERIN [Suspect]
     Active Substance: LORCASERIN HYDROCHLORIDE
     Indication: WEIGHT CONTROL
     Route: 048
     Dates: start: 20140925, end: 20150908
  28. L-LYSINE [Concomitant]
     Active Substance: LYSINE
     Route: 048
     Dates: start: 20150224
  29. OMEGA 3 KRILL OIL [Concomitant]
     Route: 048
     Dates: start: 201412
  30. LORCASERIN [Suspect]
     Active Substance: LORCASERIN HYDROCHLORIDE
     Route: 048
     Dates: start: 20160921, end: 20180109
  31. LANSOPRAZOLE. [Concomitant]
     Active Substance: LANSOPRAZOLE
     Route: 048
     Dates: start: 2010
  32. CLOBETASOL TOPICAL SOLUTION 0.05% [Concomitant]
     Route: 061
     Dates: start: 20141228
  33. MUPIROCIN 2% [Concomitant]
     Active Substance: MUPIROCIN
     Route: 061
     Dates: start: 20141228
  34. MULTIVITAMIN [Concomitant]
     Active Substance: VITAMINS
     Route: 048
     Dates: start: 20150201
  35. CHLORHEXADINE [Concomitant]
     Active Substance: CHLORHEXIDINE
     Route: 048
     Dates: start: 2004

REACTIONS (1)
  - Mitral valve incompetence [Not Recovered/Not Resolved]

NARRATIVE: CASE EVENT DATE: 20150302
